FAERS Safety Report 18939667 (Version 1)
Quarter: 2021Q1

REPORT INFORMATION
  Report Type: Other
  Country: CH (occurrence: CH)
  Receive Date: 20210225
  Receipt Date: 20210225
  Transmission Date: 20210420
  Serious: Yes (Hospitalization, Other)
  Sender: FDA-Public Use
  Company Number: CH-ROCHE-2770706

PATIENT

DRUGS (11)
  1. OCRELIZUMAB. [Suspect]
     Active Substance: OCRELIZUMAB
     Indication: MULTIPLE SCLEROSIS
     Route: 065
  2. FILGRASTIM [Suspect]
     Active Substance: FILGRASTIM
     Indication: MULTIPLE SCLEROSIS
     Route: 065
  3. BICNU [Suspect]
     Active Substance: CARMUSTINE
     Indication: MULTIPLE SCLEROSIS
     Route: 065
  4. ETOPOSIDE. [Suspect]
     Active Substance: ETOPOSIDE
     Indication: MULTIPLE SCLEROSIS
     Route: 065
  5. CYCLOPHOSPHAMIDE. [Suspect]
     Active Substance: CYCLOPHOSPHAMIDE
     Indication: MULTIPLE SCLEROSIS
     Dosage: 2G/M2
     Route: 065
  6. ATG [Suspect]
     Active Substance: LAPINE T-LYMPHOCYTE IMMUNE GLOBULIN
     Indication: MULTIPLE SCLEROSIS
     Route: 065
  7. FINGOLIMOD. [Suspect]
     Active Substance: FINGOLIMOD
     Indication: MULTIPLE SCLEROSIS
     Route: 065
  8. CYTARABINE. [Suspect]
     Active Substance: CYTARABINE
     Indication: MULTIPLE SCLEROSIS
     Route: 065
  9. MELPHALAN. [Suspect]
     Active Substance: MELPHALAN
     Indication: MULTIPLE SCLEROSIS
     Route: 065
  10. RITUXIMAB. [Suspect]
     Active Substance: RITUXIMAB
     Indication: MULTIPLE SCLEROSIS
     Route: 065
  11. NATALIZUMAB [Suspect]
     Active Substance: NATALIZUMAB
     Indication: MULTIPLE SCLEROSIS
     Route: 065

REACTIONS (22)
  - Cytomegalovirus infection reactivation [Unknown]
  - Pulmonary embolism [Unknown]
  - Cystitis haemorrhagic [Unknown]
  - Stomatitis [Unknown]
  - Hypotension [Unknown]
  - Epistaxis [Unknown]
  - Laryngitis [Unknown]
  - Cystitis viral [Unknown]
  - Abscess neck [Unknown]
  - Upper respiratory tract infection [Unknown]
  - Ileus [Unknown]
  - Urinary tract infection [Unknown]
  - Cholelithiasis [Unknown]
  - Gastroenteritis [Unknown]
  - Pharyngitis [Unknown]
  - Enteritis [Unknown]
  - Cytomegalovirus infection [Unknown]
  - Gastrointestinal haemorrhage [Unknown]
  - Mania [Unknown]
  - Neurological decompensation [Unknown]
  - Cytomegalovirus enteritis [Unknown]
  - Herpes simplex [Unknown]
